FAERS Safety Report 5091950-4 (Version None)
Quarter: 2006Q3

REPORT INFORMATION
  Report Type: 
  Country: None (occurrence: None)
  Receive Date: 20060825
  Receipt Date: 20060815
  Transmission Date: 20061208
  Serious: Yes (Hospitalization)
  Sender: FDA-Public Use
  Company Number: GXKR2006GB04771

PATIENT
  Age: 85 Year
  Sex: Female

DRUGS (6)
  1. FUROSEMIDE (NGX) (FUROSEMID) [Suspect]
     Indication: HYPERTENSION
     Dosage: 40 MG, ORAL
     Route: 048
     Dates: end: 20060627
  2. OMEPRAZOLE [Suspect]
     Indication: BARRETT'S OESOPHAGUS
     Dosage: 40 MG, QD, ORAL
     Route: 048
     Dates: end: 20060627
  3. ASPIRIN [Concomitant]
  4. NEFOPAM (NEFOPAM) [Concomitant]
  5. ACETAMINOPHEN [Concomitant]
  6. VALPROATE SODIUM [Concomitant]

REACTIONS (4)
  - BLOOD SODIUM DECREASED [None]
  - CONFUSIONAL STATE [None]
  - FALL [None]
  - URINARY TRACT INFECTION [None]
